FAERS Safety Report 5158983-0 (Version None)
Quarter: 2006Q4

REPORT INFORMATION
  Report Type: 
  Country: None (occurrence: None)
  Receive Date: 20061117
  Receipt Date: 20061106
  Transmission Date: 20070319
  Serious: Yes (Death)
  Sender: FDA-Public Use
  Company Number: 15125

PATIENT
  Age: 64 Year
  Sex: Male

DRUGS (4)
  1. MITOXANTRONE [Suspect]
     Indication: PROSTATE CANCER
     Dosage: 12 MG/M2 Q3W
  2. PREDNISONE TAB [Concomitant]
  3. GOSERELIN [Concomitant]
  4. BICALUTAMIDE [Concomitant]

REACTIONS (12)
  - ABDOMINAL PAIN [None]
  - ACUTE MYELOID LEUKAEMIA [None]
  - BLOOD BILIRUBIN INCREASED [None]
  - CHROMOSOME ANALYSIS ABNORMAL [None]
  - FEBRILE NEUTROPENIA [None]
  - HYPOTENSION [None]
  - HYPOXIA [None]
  - LUNG INFILTRATION [None]
  - MULTI-ORGAN FAILURE [None]
  - NAUSEA [None]
  - OPPORTUNISTIC INFECTION [None]
  - RENAL FAILURE [None]
